FAERS Safety Report 21809293 (Version 1)
Quarter: 2023Q1

REPORT INFORMATION
  Report Type: Spontaneous
  Country: IR (occurrence: IR)
  Receive Date: 20230103
  Receipt Date: 20230103
  Transmission Date: 20230418
  Serious: Yes (Death, Life-Threatening, Hospitalization)
  Sender: FDA-Public Use
  Company Number: IR-STRIDES ARCOLAB LIMITED-2022SP017748

PATIENT
  Age: 6 Year
  Sex: Female

DRUGS (16)
  1. VANCOMYCIN [Suspect]
     Active Substance: VANCOMYCIN
     Indication: Neutropenic colitis
     Dosage: 15 MILLIGRAM/KILOGRAM, EVERY 6 HRS
     Route: 065
     Dates: start: 2021
  2. VANCOMYCIN [Suspect]
     Active Substance: VANCOMYCIN
     Indication: Mucormycosis
  3. VANCOMYCIN [Suspect]
     Active Substance: VANCOMYCIN
     Indication: Aspergillus infection
  4. PIPERACILLIN SODIUM\TAZOBACTAM SODIUM [Suspect]
     Active Substance: PIPERACILLIN SODIUM\TAZOBACTAM SODIUM
     Indication: Neutropenic colitis
     Dosage: 100 MILLIGRAM/KILOGRAM, EVERY 6 HRS
     Route: 065
     Dates: start: 2021
  5. PIPERACILLIN SODIUM\TAZOBACTAM SODIUM [Suspect]
     Active Substance: PIPERACILLIN SODIUM\TAZOBACTAM SODIUM
     Indication: Mucormycosis
  6. PIPERACILLIN SODIUM\TAZOBACTAM SODIUM [Suspect]
     Active Substance: PIPERACILLIN SODIUM\TAZOBACTAM SODIUM
     Indication: Aspergillus infection
  7. AMPHOTERICIN B [Suspect]
     Active Substance: AMPHOTERICIN B
     Indication: Mucormycosis
     Dosage: 5 MILLIGRAM/KILOGRAM PER DAY, LIPOSOMAL
     Route: 065
     Dates: start: 2021
  8. AMPHOTERICIN B [Suspect]
     Active Substance: AMPHOTERICIN B
     Indication: Aspergillus infection
  9. LINEZOLID [Suspect]
     Active Substance: LINEZOLID
     Indication: Neutropenic colitis
     Dosage: UNK
     Route: 065
     Dates: start: 2021
  10. LINEZOLID [Suspect]
     Active Substance: LINEZOLID
     Indication: Mucormycosis
  11. LINEZOLID [Suspect]
     Active Substance: LINEZOLID
     Indication: Aspergillus infection
  12. COLISTIN [Suspect]
     Active Substance: COLISTIN
     Indication: Neutropenic colitis
     Dosage: UNK
     Route: 065
     Dates: start: 2021
  13. COLISTIN [Suspect]
     Active Substance: COLISTIN
     Indication: Mucormycosis
  14. COLISTIN [Suspect]
     Active Substance: COLISTIN
     Indication: Aspergillus infection
  15. VORICONAZOLE [Suspect]
     Active Substance: VORICONAZOLE
     Indication: Mucormycosis
     Dosage: UNK
     Route: 065
     Dates: start: 2021
  16. VORICONAZOLE [Suspect]
     Active Substance: VORICONAZOLE
     Indication: Aspergillus infection

REACTIONS (3)
  - Disseminated intravascular coagulation [Fatal]
  - Multiple organ dysfunction syndrome [Fatal]
  - Drug ineffective for unapproved indication [Unknown]

NARRATIVE: CASE EVENT DATE: 20211101
